FAERS Safety Report 5336382-6 (Version None)
Quarter: 2007Q2

REPORT INFORMATION
  Report Type: 
  Country: None (occurrence: None)
  Receive Date: 20070523
  Receipt Date: 20070509
  Transmission Date: 20071010
  Serious: No
  Sender: FDA-Public Use
  Company Number: 2007BI007294

PATIENT
  Age: 55 Year
  Sex: Female

DRUGS (6)
  1. NATALIZUMAB [Suspect]
     Indication: MULTIPLE SCLEROSIS
     Dosage: 300 MG;QM;IV
     Route: 042
     Dates: start: 20070102
  2. AVONEX [Concomitant]
  3. PROVIGIL [Concomitant]
  4. LEXAPRO [Concomitant]
  5. DITROPAN [Concomitant]
  6. XANAX [Concomitant]

REACTIONS (1)
  - CELLULITIS [None]
